FAERS Safety Report 13901760 (Version 1)
Quarter: 2017Q3

REPORT INFORMATION
  Report Type: Spontaneous
  Country: US (occurrence: US)
  Receive Date: 20170824
  Receipt Date: 20170824
  Transmission Date: 20171127
  Serious: No
  Sender: FDA-Public Use
  Company Number: US-ROCHE-1124929

PATIENT
  Sex: Female

DRUGS (6)
  1. CARBOPLATIN. [Concomitant]
     Active Substance: CARBOPLATIN
     Route: 065
  2. HERCEPTIN [Suspect]
     Active Substance: TRASTUZUMAB
     Indication: BREAST CANCER METASTATIC
     Dosage: LOADING DOSE
     Route: 065
     Dates: start: 20000428
  3. HERCEPTIN [Suspect]
     Active Substance: TRASTUZUMAB
     Indication: HAEMATOLOGICAL MALIGNANCY
     Dosage: MAINTENANCE DOSE
     Route: 065
     Dates: start: 20000519
  4. HERCEPTIN [Suspect]
     Active Substance: TRASTUZUMAB
     Dosage: MAINTENANCE DOSE
     Route: 065
     Dates: start: 20000602
  5. HERCEPTIN [Suspect]
     Active Substance: TRASTUZUMAB
     Dosage: MAINTENANCE DOSE
     Route: 065
     Dates: start: 20000524
  6. GEMZAR [Concomitant]
     Active Substance: GEMCITABINE HYDROCHLORIDE
     Route: 065

REACTIONS (3)
  - Thrombocytopenia [Unknown]
  - Bone pain [Not Recovered/Not Resolved]
  - Diarrhoea [Recovered/Resolved]
